FAERS Safety Report 18339070 (Version 4)
Quarter: 2020Q4

REPORT INFORMATION
  Report Type: Report from Study
  Country: IT (occurrence: IT)
  Receive Date: 20201002
  Receipt Date: 20201209
  Transmission Date: 20210113
  Serious: Yes (Death, Life-Threatening, Hospitalization)
  Sender: FDA-Public Use
  Company Number: IT-CELGENEUS-ITA-20200601638

PATIENT
  Age: 77 Year
  Sex: Male
  Weight: 67 kg

DRUGS (24)
  1. EDOXABAN [Concomitant]
     Active Substance: EDOXABAN TOSYLATE
     Indication: ATRIAL FIBRILLATION
     Dosage: 30 MG X 1 X 1 DAYS
     Route: 048
     Dates: start: 20180706, end: 20200604
  2. PARACETAMOL [Concomitant]
     Active Substance: ACETAMINOPHEN
     Indication: ADVERSE EVENT
     Dosage: 10 MG/ML/MIN
     Route: 042
     Dates: start: 20200613, end: 20200613
  3. FEDRATINIB [Suspect]
     Active Substance: FEDRATINIB
     Indication: MYELOFIBROSIS
     Dosage: 400 MG X 1 X 1 DAYS
     Route: 048
     Dates: start: 20200110, end: 20200220
  4. FEDRATINIB [Suspect]
     Active Substance: FEDRATINIB
     Dosage: 300 MG X 1 X 1 DAYS
     Route: 048
     Dates: start: 20200221, end: 20200429
  5. BUDENOSIDE [Concomitant]
     Active Substance: BUDESONIDE
     Indication: CHRONIC OBSTRUCTIVE PULMONARY DISEASE
     Dosage: 200 UG X 2 X 1 DAYS
     Route: 055
     Dates: start: 20160906
  6. ENOXAPARINA [Concomitant]
     Active Substance: ENOXAPARIN
     Indication: ATRIAL FIBRILLATION
     Dosage: 4000 IU X 1 X 1 DAYS
     Route: 030
     Dates: start: 20200612
  7. METILPREDNISOLONE [Concomitant]
     Active Substance: METHYLPREDNISOLONE
     Indication: ADENOCARCINOMA GASTRIC
     Dosage: 20 MILLIGRAM
     Route: 042
     Dates: start: 20200620, end: 20200620
  8. SPIRONOLATTONE [Concomitant]
     Active Substance: SPIRONOLACTONE
     Indication: HYPERTENSION
     Dosage: 37 MG X 1 X 1 DAYS
     Route: 048
     Dates: start: 20190509, end: 20200603
  9. ATORVASTATINA [Concomitant]
     Active Substance: ATORVASTATIN
     Indication: DYSLIPIDAEMIA
     Dosage: 10 MG X 1 X 1 DAYS
     Route: 048
     Dates: start: 20180503
  10. LEVOTIROXINA [Concomitant]
     Active Substance: LEVOTHYROXINE
     Indication: HYPOTHYROIDISM
     Dosage: 50 UL/ML X 1 X 1 DAYS
     Route: 048
     Dates: start: 20190509
  11. VITAMIN B6 [Concomitant]
     Active Substance: PYRIDOXINE HYDROCHLORIDE
     Indication: HYPOVITAMINOSIS
     Dosage: 300 MG X 1 X 1 DAYS
     Route: 048
     Dates: start: 20190307
  12. AMOXICILLIN/CLAVULANIC ACID [Concomitant]
     Active Substance: AMOXICILLIN\CLAVULANIC ACID
     Indication: ADVERSE EVENT
     Dosage: 875+125 MG
     Route: 048
     Dates: start: 20200605, end: 20200612
  13. PARACETAMOL [Concomitant]
     Active Substance: ACETAMINOPHEN
     Dosage: 10 MILLIGRAM
     Route: 042
     Dates: start: 20200620, end: 20200620
  14. BISOPROLOLE [Concomitant]
     Indication: ATRIAL FIBRILLATION
     Dosage: 2.5 MG X 2 X 1 DAYS
     Route: 048
     Dates: start: 20180503
  15. METILPREDNISOLONE [Concomitant]
     Active Substance: METHYLPREDNISOLONE
     Indication: MYELOFIBROSIS
     Dosage: 16 MG X 1 X 1 DAYS
     Route: 048
     Dates: start: 20200714
  16. PANTOPRAZOLE [Concomitant]
     Active Substance: PANTOPRAZOLE
     Indication: PRODUCT USED FOR UNKNOWN INDICATION
     Dosage: 20 MILLIGRAM
     Route: 048
     Dates: start: 20200519, end: 20200713
  17. OXYGEN. [Concomitant]
     Active Substance: OXYGEN
     Indication: ADVERSE EVENT
     Dosage: 1 L/MIN
     Route: 055
     Dates: start: 20200617, end: 20200617
  18. DANAZOLE [Concomitant]
     Indication: MYELOFIBROSIS
     Dosage: 200 MG X 2 X 1 DAYS
     Route: 048
     Dates: start: 20200714
  19. ACLIDINIUM (ACLIDINIUM BROMIDE) [Concomitant]
     Indication: CHRONIC OBSTRUCTIVE PULMONARY DISEASE
     Dosage: 322 UG X 2 X 1 DAYS
     Route: 055
     Dates: start: 20190307, end: 20200527
  20. ALLOPURINOLE [Concomitant]
     Indication: PROPHYLAXIS
     Dosage: 300 MG X 1 X 1 DAYS
     Route: 048
     Dates: start: 20200528
  21. UMECLIDINIO BROMURO [Concomitant]
     Indication: CHRONIC OBSTRUCTIVE PULMONARY DISEASE
     Dosage: 55 UG X 1 X 1 DAYS
     Route: 055
     Dates: start: 20200604
  22. OMEPRAZOLE. [Concomitant]
     Active Substance: OMEPRAZOLE
     Indication: ADVERSE EVENT
     Dosage: 80 MILLIGRAM
     Route: 042
     Dates: start: 20200605, end: 20200702
  23. FEDRATINIB [Suspect]
     Active Substance: FEDRATINIB
     Dosage: 200 MG X 1 X 1 DAYS
     Route: 048
     Dates: start: 20200430, end: 20200527
  24. FUROSEMIDE. [Concomitant]
     Active Substance: FUROSEMIDE
     Indication: HYPERTENSION
     Dosage: 25 MG X 1 X 1 DAYS
     Route: 048
     Dates: start: 20190509

REACTIONS (3)
  - Adenocarcinoma gastric [Not Recovered/Not Resolved]
  - General physical health deterioration [Fatal]
  - Gastric ulcer [Not Recovered/Not Resolved]

NARRATIVE: CASE EVENT DATE: 20200604
